FAERS Safety Report 23194518 (Version 2)
Quarter: 2024Q1

REPORT INFORMATION
  Report Type: Report from Study
  Country: US (occurrence: US)
  Receive Date: 20231117
  Receipt Date: 20240111
  Transmission Date: 20240410
  Serious: Yes (Other)
  Sender: FDA-Public Use
  Company Number: US-JNJFOC-20231119667

PATIENT
  Age: 27 Year
  Sex: Male

DRUGS (2)
  1. STELARA [Suspect]
     Active Substance: USTEKINUMAB
     Indication: Crohn^s disease
     Route: 058
     Dates: start: 20230926
  2. STELARA [Suspect]
     Active Substance: USTEKINUMAB
     Route: 058
     Dates: start: 20231207

REACTIONS (3)
  - Prostate infection [Not Recovered/Not Resolved]
  - Hot flush [Unknown]
  - Feeling hot [Unknown]

NARRATIVE: CASE EVENT DATE: 20231104
